FAERS Safety Report 24067327 (Version 1)
Quarter: 2024Q3

REPORT INFORMATION
  Report Type: Spontaneous
  Country: US (occurrence: US)
  Receive Date: 20240709
  Receipt Date: 20240709
  Transmission Date: 20241017
  Serious: No
  Sender: AMARIN
  Company Number: US-Amarin Pharma  Inc-2024AMR000248

PATIENT
  Age: 48 Year
  Sex: Female

DRUGS (1)
  1. VASCEPA [Suspect]
     Active Substance: ICOSAPENT ETHYL
     Indication: Blood cholesterol
     Dates: start: 2022

REACTIONS (6)
  - Throat irritation [Unknown]
  - Thermal burns of eye [Unknown]
  - Eructation [Unknown]
  - Product outer packaging issue [Unknown]
  - Product odour abnormal [Unknown]
  - Product physical issue [Unknown]
